FAERS Safety Report 13534266 (Version 1)
Quarter: 2017Q2

REPORT INFORMATION
  Report Type: Spontaneous
  Country: CH (occurrence: CH)
  Receive Date: 20170510
  Receipt Date: 20170510
  Transmission Date: 20170830
  Serious: Yes (Hospitalization)
  Sender: FDA-Public Use
  Company Number: CH-009507513-1705CHE001863

PATIENT
  Age: 85 Year
  Sex: Female
  Weight: 57 kg

DRUGS (5)
  1. ZOCOR [Suspect]
     Active Substance: SIMVASTATIN
     Route: 048
  2. LIXIANA [Suspect]
     Active Substance: EDOXABAN TOSYLATE
     Route: 048
     Dates: end: 20170329
  3. TOREM [Suspect]
     Active Substance: TORSEMIDE
     Route: 048
  4. CONCOR [Suspect]
     Active Substance: BISOPROLOL FUMARATE
     Route: 048
  5. PERINDOPRIL ACTAVIS [Suspect]
     Active Substance: PERINDOPRIL
     Route: 048

REACTIONS (3)
  - Transaminases increased [Unknown]
  - Gastrointestinal haemorrhage [Recovering/Resolving]
  - Hyponatraemia [Unknown]

NARRATIVE: CASE EVENT DATE: 20170329
